FAERS Safety Report 9540499 (Version 2)
Quarter: 2013Q4

REPORT INFORMATION
  Report Type: Spontaneous
  Country: JP (occurrence: JP)
  Receive Date: 20130920
  Receipt Date: 20131230
  Transmission Date: 20140711
  Serious: Yes (Hospitalization)
  Sender: FDA-Public Use
  Company Number: JP-VERTEX PHARMACEUTICALS INC-2013-009771

PATIENT
  Age: 51 Year
  Sex: Male

DRUGS (16)
  1. TELAVIC [Suspect]
     Indication: HEPATITIS C
     Dosage: 2250 MG, QD
     Route: 048
     Dates: start: 20130702, end: 20130729
  2. TELAVIC [Suspect]
     Dosage: 750 MG, QD
     Route: 048
  3. REBETOL [Suspect]
     Indication: HEPATITIS C
     Dosage: 800 MG, QD
     Route: 048
     Dates: start: 20130702, end: 20130729
  4. PEGINTRON [Suspect]
     Indication: HEPATITIS C
     Dosage: 100 ?G, QW
     Route: 058
     Dates: start: 20130702, end: 20130723
  5. TALION [Concomitant]
     Dosage: 30 MG, QD
     Route: 048
     Dates: start: 20130705
  6. TALION [Concomitant]
     Dosage: 30 MG, QD
     Route: 048
     Dates: start: 20130722, end: 20130808
  7. DERMOVATE [Concomitant]
     Dosage: UNK
     Route: 003
     Dates: start: 20130705
  8. DERMOVATE [Concomitant]
     Dosage: UNK
     Route: 003
     Dates: start: 20130722
  9. PARIET [Concomitant]
     Dosage: 10 MG, QD
     Route: 048
  10. ZOLPIDEM TARTRATE [Concomitant]
     Dosage: 10 MG, QD
     Route: 048
  11. MAGNESIUM OXIDE [Concomitant]
     Dosage: 1.5 G, QD
     Route: 048
  12. CHLOR-TRIMETON [Concomitant]
  13. SOLDEM 3A [Concomitant]
     Route: 041
  14. PREDNISOLONE [Concomitant]
     Dosage: 30 MG, QD
     Route: 048
     Dates: start: 20130730
  15. PREDNISOLONE [Concomitant]
     Dosage: 20 MG, QD
     Route: 048
     Dates: start: 20130805
  16. PREDNISOLONE [Concomitant]
     Dosage: 10 MG, QD
     Route: 048
     Dates: start: 20130813

REACTIONS (1)
  - Dermatitis exfoliative [Recovered/Resolved]
